FAERS Safety Report 25834270 (Version 1)
Quarter: 2025Q3

REPORT INFORMATION
  Report Type: Spontaneous
  Country: EU (occurrence: EU)
  Receive Date: 20250923
  Receipt Date: 20250923
  Transmission Date: 20251021
  Serious: Yes (Other)
  Sender: JOHNSON AND JOHNSON
  Company Number: EU-JNJFOC-20250922223

PATIENT
  Sex: Male

DRUGS (3)
  1. ERLEADA [Suspect]
     Active Substance: APALUTAMIDE
     Indication: Product used for unknown indication
     Route: 048
  2. OMEPRAZOLE [Concomitant]
     Active Substance: OMEPRAZOLE
     Indication: Product used for unknown indication
  3. PRALUANTE [Concomitant]
     Indication: Blood cholesterol increased

REACTIONS (7)
  - Hypothyroidism [Recovering/Resolving]
  - Hypertension [Unknown]
  - Urinary incontinence [Unknown]
  - Hypotension [Unknown]
  - Coronary artery occlusion [Unknown]
  - Fatigue [Unknown]
  - COVID-19 [Unknown]
